FAERS Safety Report 13044298 (Version 1)
Quarter: 2016Q4

REPORT INFORMATION
  Report Type: Spontaneous
  Country: US (occurrence: US)
  Receive Date: 20161220
  Receipt Date: 20161220
  Transmission Date: 20170207
  Serious: No
  Sender: FDA-Public Use
  Company Number: US-ACTAVIS-2016-08696

PATIENT
  Age: 78 Year
  Sex: Female

DRUGS (1)
  1. MINOXIDIL (AMALLC) [Suspect]
     Active Substance: MINOXIDIL
     Indication: HAIR GROWTH ABNORMAL
     Dosage: 5 %, PRN, ONE TIME USE
     Route: 061
     Dates: start: 201512, end: 201512

REACTIONS (2)
  - Product use issue [Recovered/Resolved]
  - Pruritus [Recovered/Resolved]

NARRATIVE: CASE EVENT DATE: 201512
